FAERS Safety Report 20001454 (Version 1)
Quarter: 2021Q4

REPORT INFORMATION
  Report Type: Spontaneous
  Country: US (occurrence: US)
  Receive Date: 20211027
  Receipt Date: 20211027
  Transmission Date: 20220303
  Serious: Yes (Death)
  Sender: FDA-Public Use
  Company Number: None

PATIENT
  Age: 84 Year
  Sex: Male

DRUGS (11)
  1. EVEROLIMUS [Suspect]
     Active Substance: EVEROLIMUS
     Indication: Carcinoid tumour of the small bowel
     Route: 048
     Dates: start: 20210723, end: 20210930
  2. EZETIMIBE [Concomitant]
     Active Substance: EZETIMIBE
  3. LEVETIRACETAM [Concomitant]
     Active Substance: LEVETIRACETAM
  4. MIRTAZAPINE [Concomitant]
     Active Substance: MIRTAZAPINE
  5. PAROXETINE [Concomitant]
     Active Substance: PAROXETINE
  6. SANDOSTATIN [Concomitant]
     Active Substance: OCTREOTIDE ACETATE
  7. SPIRONOLACTONE [Concomitant]
     Active Substance: SPIRONOLACTONE
  8. SYNTHROID [Concomitant]
     Active Substance: LEVOTHYROXINE SODIUM
  9. TADALAFIL [Concomitant]
     Active Substance: TADALAFIL
  10. TAMSULOSIN [Concomitant]
     Active Substance: TAMSULOSIN
  11. XERMELO [Concomitant]
     Active Substance: TELOTRISTAT ETHYL

REACTIONS (1)
  - Death [None]

NARRATIVE: CASE EVENT DATE: 20211011
